FAERS Safety Report 4882452-6 (Version None)
Quarter: 2006Q1

REPORT INFORMATION
  Report Type: 
  Country: None (occurrence: None)
  Receive Date: 20060113
  Receipt Date: 20060103
  Transmission Date: 20060701
  Serious: Yes (Other)
  Sender: FDA-Public Use
  Company Number: 2006004329

PATIENT
  Sex: Female
  Weight: 58.9676 kg

DRUGS (3)
  1. CELEBREX [Suspect]
     Indication: RHEUMATOID ARTHRITIS
     Dosage: 200 MG (200 MG, 1 IN 1 D)
  2. ZOLOFT [Suspect]
     Indication: ANXIETY
     Dosage: 100 MG (100 MG, 1 IN 1 D)
  3. METOPROLOL (METOPROLOL) [Concomitant]

REACTIONS (8)
  - ANXIETY [None]
  - BILIARY CIRRHOSIS PRIMARY [None]
  - CYST [None]
  - DRUG EFFECT DECREASED [None]
  - GASTRIC PERFORATION [None]
  - HEPATITIS [None]
  - HYPOACUSIS [None]
  - INSOMNIA [None]
